FAERS Safety Report 23434143 (Version 2)
Quarter: 2024Q1

REPORT INFORMATION
  Report Type: Spontaneous
  Country: US (occurrence: US)
  Receive Date: 20240123
  Receipt Date: 20240326
  Transmission Date: 20240409
  Serious: No
  Sender: FDA-Public Use
  Company Number: US-BRISTOL-MYERS SQUIBB COMPANY-2024-011562

PATIENT
  Age: 60 Year
  Sex: Female

DRUGS (3)
  1. ZEPOSIA [Suspect]
     Active Substance: OZANIMOD HYDROCHLORIDE
     Indication: Multiple sclerosis
     Route: 048
     Dates: start: 202401
  2. AUBAGIO [Concomitant]
     Active Substance: TERIFLUNOMIDE
     Indication: Product used for unknown indication
  3. TERIFLUNOMIDE [Concomitant]
     Active Substance: TERIFLUNOMIDE
     Indication: Product used for unknown indication

REACTIONS (4)
  - Pain in extremity [Unknown]
  - Muscle discomfort [Unknown]
  - Hypersensitivity [Unknown]
  - Lacrimation increased [Unknown]
